FAERS Safety Report 5216459-6 (Version None)
Quarter: 2006Q4

REPORT INFORMATION
  Report Type: 
  Country: None (occurrence: None)
  Receive Date: 20061129
  Receipt Date: 20020625
  Transmission Date: 20070319
  Serious: Yes (Hospitalization)
  Sender: FDA-Public Use
  Company Number: 2002UW08847

PATIENT

DRUGS (1)
  1. FASLODEX [Suspect]
     Dates: start: 20020611

REACTIONS (2)
  - NAUSEA [None]
  - VOMITING [None]
